FAERS Safety Report 5040983-2 (Version None)
Quarter: 2006Q2

REPORT INFORMATION
  Report Type: 
  Country: None (occurrence: None)
  Receive Date: 20060629
  Receipt Date: 20060629
  Transmission Date: 20061013
  Serious: Yes (Hospitalization)
  Sender: FDA-Public Use
  Company Number: None

PATIENT
  Sex: Male
  Weight: 72.5755 kg

DRUGS (1)
  1. SUTENT [Suspect]
     Indication: RENAL CELL CARCINOMA STAGE UNSPECIFIED
     Dosage: 50 DAILY PO
     Route: 048
     Dates: start: 20060321, end: 20060531

REACTIONS (3)
  - CEREBELLAR HAEMORRHAGE [None]
  - FATIGUE [None]
  - STOMATITIS [None]
